FAERS Safety Report 19169700 (Version 1)
Quarter: 2021Q2

REPORT INFORMATION
  Report Type: Spontaneous
  Country: US (occurrence: US)
  Receive Date: 20210422
  Receipt Date: 20210422
  Transmission Date: 20210717
  Serious: Yes (Other)
  Sender: FDA-Public Use
  Company Number: US-ASTELLAS-2020US022341

PATIENT
  Age: 77 Year
  Sex: Male

DRUGS (4)
  1. LEXISCAN [Suspect]
     Active Substance: REGADENOSON
     Indication: CARDIAC STRESS TEST
     Dosage: 0.4 MG/5ML, UNKNOWN FREQ.
     Route: 042
     Dates: start: 20200625, end: 20200625
  2. LEXISCAN [Suspect]
     Active Substance: REGADENOSON
     Indication: CARDIAC STRESS TEST
     Dosage: 0.4 MG/5ML, UNKNOWN FREQ.
     Route: 042
     Dates: start: 20200625, end: 20200625
  3. LEXISCAN [Suspect]
     Active Substance: REGADENOSON
     Indication: CARDIAC STRESS TEST
     Dosage: 0.4 MG/5ML, UNKNOWN FREQ.
     Route: 042
     Dates: start: 20200625, end: 20200625
  4. LEXISCAN [Suspect]
     Active Substance: REGADENOSON
     Indication: CARDIAC STRESS TEST
     Dosage: 0.4 MG/5ML, UNKNOWN FREQ.
     Route: 042
     Dates: start: 20200625, end: 20200625

REACTIONS (2)
  - Tachycardia [Unknown]
  - Blood pressure increased [Recovering/Resolving]

NARRATIVE: CASE EVENT DATE: 20200626
